FAERS Safety Report 8630776 (Version 3)
Quarter: 2012Q4

REPORT INFORMATION
  Report Type: Report from Study
  Country: GB (occurrence: IL)
  Receive Date: 20120622
  Receipt Date: 20120831
  Transmission Date: 20130627
  Serious: Yes (Hospitalization)
  Sender: FDA-Public Use
  Company Number: IL-BRISTOL-MYERS SQUIBB COMPANY-16692162

PATIENT
  Age: 88 Year
  Sex: Female

DRUGS (3)
  1. APIXABAN [Suspect]
     Indication: THROMBOSIS PROPHYLAXIS
     Dosage: 11Oct09-22Jul10:5mg
31Aug10-Unk:5mg
81mg
     Route: 048
     Dates: start: 20091011
  2. GLUCOPHAGE [Suspect]
     Dates: start: 1999
  3. NORVASC [Concomitant]
     Dates: start: 1989

REACTIONS (1)
  - Confusional state [Recovered/Resolved]
